FAERS Safety Report 19300477 (Version 1)
Quarter: 2021Q2

REPORT INFORMATION
  Report Type: Spontaneous
  Country: US (occurrence: US)
  Receive Date: 20210525
  Receipt Date: 20210525
  Transmission Date: 20210717
  Serious: Yes (Death)
  Sender: FDA-Public Use
  Company Number: None

PATIENT
  Age: 49 Year
  Sex: Female

DRUGS (7)
  1. BENZONATATE. [Concomitant]
     Active Substance: BENZONATATE
  2. HYDROCHLOROTHIAZIDE. [Concomitant]
     Active Substance: HYDROCHLOROTHIAZIDE
  3. ATENOLOL. [Concomitant]
     Active Substance: ATENOLOL
  4. ELIQUIS [Concomitant]
     Active Substance: APIXABAN
  5. CAPECITABINE. [Suspect]
     Active Substance: CAPECITABINE
     Indication: METASTATIC NEOPLASM
     Route: 048
     Dates: start: 20210414
  6. HYDROCORTISONE. [Concomitant]
     Active Substance: HYDROCORTISONE
  7. POTASSIUM CHLORIDE. [Concomitant]
     Active Substance: POTASSIUM CHLORIDE

REACTIONS (1)
  - Death [None]
